FAERS Safety Report 18488998 (Version 1)
Quarter: 2020Q4

REPORT INFORMATION
  Report Type: Spontaneous
  Country: US (occurrence: US)
  Receive Date: 20201111
  Receipt Date: 20201111
  Transmission Date: 20210114
  Serious: No
  Sender: FDA-Public Use
  Company Number: US-TEVA-2020-US-1847758

PATIENT
  Age: 50 Year
  Sex: Female
  Weight: 61.23 kg

DRUGS (1)
  1. HYDROCORTISONE. [Suspect]
     Active Substance: HYDROCORTISONE
     Dosage: FOR 25 YEARS SHE HAS BEEN USING HYDROCORTISONE
     Route: 065

REACTIONS (2)
  - Sensitive skin [Unknown]
  - Erythema [Unknown]
